FAERS Safety Report 23127720 (Version 1)
Quarter: 2023Q4

REPORT INFORMATION
  Report Type: Spontaneous
  Country: US (occurrence: US)
  Receive Date: 20231031
  Receipt Date: 20231031
  Transmission Date: 20240110
  Serious: No
  Sender: FDA-Public Use
  Company Number: US-UNIQUE PHARMACEUTICAL LABORATORIES, A DIV. OF JBCPL-2023UNI000011

PATIENT
  Age: 93 Year
  Sex: Female
  Weight: 63.492 kg

DRUGS (1)
  1. CIPROFLOXACIN [Suspect]
     Active Substance: CIPROFLOXACIN
     Indication: Urinary tract infection
     Dosage: UNK
     Route: 048
     Dates: start: 20230324, end: 20230328

REACTIONS (2)
  - Neuropathy peripheral [Recovered/Resolved with Sequelae]
  - Contraindicated product prescribed [Unknown]

NARRATIVE: CASE EVENT DATE: 20230301
